FAERS Safety Report 7894290-0 (Version None)
Quarter: 2011Q4

REPORT INFORMATION
  Report Type: 
  Country: None (occurrence: None)
  Receive Date: 20111104
  Receipt Date: 20111020
  Transmission Date: 20120403
  Serious: Yes (Other)
  Sender: FDA-Public Use
  Company Number: FR-WATSON-2011-17613

PATIENT
  Age: 46 Year
  Sex: Female

DRUGS (2)
  1. ESTRADIOL [Suspect]
     Indication: HORMONE THERAPY
     Dosage: UNKNOWN
     Route: 065
  2. CYPROTERONE (UNKNOWN) [Suspect]
     Indication: HORMONE REPLACEMENT THERAPY
     Dosage: 50 MG, DAILY
     Route: 048

REACTIONS (1)
  - MENINGIOMA [None]
